FAERS Safety Report 5177039-4 (Version None)
Quarter: 2006Q4

REPORT INFORMATION
  Report Type: 
  Country: None (occurrence: None)
  Receive Date: 20061218
  Receipt Date: 20061108
  Transmission Date: 20070319
  Serious: No
  Sender: FDA-Public Use
  Company Number: JP-GLAXOSMITHKLINE-B0446187A

PATIENT
  Age: 82 Year
  Sex: Female

DRUGS (1)
  1. PAXIL [Suspect]
     Indication: DEPRESSION
     Dosage: 20MG PER DAY
     Route: 048
     Dates: start: 20061020, end: 20061031

REACTIONS (3)
  - DIZZINESS [None]
  - IRRITABILITY [None]
  - OBSESSIVE THOUGHTS [None]
